FAERS Safety Report 8382887-3 (Version None)
Quarter: 2012Q2

REPORT INFORMATION
  Report Type: 
  Country: None (occurrence: None)
  Receive Date: 20120524
  Receipt Date: 20120518
  Transmission Date: 20120825
  Serious: Yes (Death, Other)
  Sender: FDA-Public Use
  Company Number: JP-CELGENEUS-087-21880-10120487

PATIENT
  Age: 50 Year
  Sex: Female
  Weight: 41.8 kg

DRUGS (22)
  1. REVLIMID [Suspect]
     Dosage: 10 MILLIGRAM
     Route: 048
     Dates: start: 20100908, end: 20100915
  2. COTRIM [Concomitant]
     Indication: PROPHYLAXIS
     Dosage: 1 GRAM
     Route: 048
  3. LANSOPRAZOLE [Concomitant]
     Indication: PROPHYLAXIS
     Dosage: 15 MILLIGRAM
     Route: 048
  4. REVLIMID [Suspect]
     Dosage: 25 MILLIGRAM
     Route: 048
     Dates: start: 20100916, end: 20100925
  5. REVLIMID [Suspect]
     Dosage: 10 MILLIGRAM
     Route: 048
     Dates: start: 20101012, end: 20101014
  6. VFEND [Suspect]
     Indication: PROPHYLAXIS
     Dosage: 400 MILLIGRAM
     Route: 048
     Dates: start: 20100901
  7. PREDNISOLONE [Concomitant]
     Indication: MULTIPLE MYELOMA
     Dosage: 10 MILLIGRAM
     Route: 048
     Dates: end: 20100928
  8. MORPHINE [Concomitant]
     Indication: MULTIPLE MYELOMA
     Dosage: 10 MILLIGRAM
     Route: 048
     Dates: start: 20100908, end: 20101006
  9. LEVOTHYROXINE SODIUM [Concomitant]
     Indication: PROPHYLAXIS
     Dosage: 100 MICROGRAM
     Route: 048
  10. CANDESARTAN CILEXETIL [Concomitant]
     Indication: HYPERTENSION
     Dosage: 4 MILLIGRAM
     Route: 048
  11. OZEX [Concomitant]
     Indication: MULTIPLE MYELOMA
     Dosage: 300 MILLIGRAM
     Route: 048
     Dates: start: 20101013
  12. URSO 250 [Concomitant]
     Indication: MULTIPLE MYELOMA
     Dosage: 400 MILLIGRAM
     Route: 048
     Dates: start: 20101005, end: 20101015
  13. POLARAMINE [Concomitant]
     Indication: MULTIPLE MYELOMA
     Dosage: 5 MILLIGRAM
     Route: 041
     Dates: start: 20100908, end: 20100908
  14. FENTANYL-100 [Concomitant]
  15. LENDORMIN D [Concomitant]
     Indication: PROPHYLAXIS
     Dosage: .25 MILLIGRAM
     Route: 048
  16. GABAPENTIN [Concomitant]
     Indication: PROPHYLAXIS
     Dosage: 400 MILLIGRAM
     Route: 048
  17. ACETAMINOPHEN [Concomitant]
     Indication: PROPHYLAXIS
     Dosage: 1200 MILLIGRAM
     Route: 048
  18. ITRACONAZOLE [Concomitant]
     Indication: MULTIPLE MYELOMA
     Dosage: 20 MILLIGRAM
     Route: 048
     Dates: start: 20100930, end: 20101013
  19. RESTAMIN CORTISONE [Concomitant]
     Indication: MULTIPLE MYELOMA
     Dosage: 2 GRAM
     Route: 062
     Dates: start: 20100924
  20. PREDNISOLONE [Concomitant]
     Dosage: 5 MILLIGRAM
     Route: 048
     Dates: start: 20100929, end: 20101103
  21. ZOMETA [Concomitant]
     Indication: MULTIPLE MYELOMA
     Dosage: 3 MILLIGRAM
     Route: 041
     Dates: start: 20100928, end: 20100928
  22. FENTANYL-100 [Concomitant]
     Dosage: 8.4 MILLIGRAM
     Route: 062

REACTIONS (6)
  - HEPATIC FUNCTION ABNORMAL [None]
  - ABDOMINAL WALL HAEMATOMA [None]
  - RENAL IMPAIRMENT [None]
  - FULL BLOOD COUNT DECREASED [None]
  - CONSTIPATION [None]
  - DIARRHOEA [None]
